FAERS Safety Report 19385638 (Version 5)
Quarter: 2022Q1

REPORT INFORMATION
  Report Type: Spontaneous
  Country: JP (occurrence: JP)
  Receive Date: 20210608
  Receipt Date: 20220324
  Transmission Date: 20220423
  Serious: Yes (Hospitalization, Other)
  Sender: FDA-Public Use
  Company Number: JP-ABBVIE-21K-087-3933440-00

PATIENT
  Age: 46 Year
  Sex: Male
  Weight: 67 kg

DRUGS (4)
  1. HUMIRA [Suspect]
     Active Substance: ADALIMUMAB
     Indication: Crohn^s disease
     Route: 058
     Dates: start: 201608, end: 201806
  2. HUMIRA [Suspect]
     Active Substance: ADALIMUMAB
     Route: 058
     Dates: start: 201806, end: 20210527
  3. BUDESONIDE [Concomitant]
     Active Substance: BUDESONIDE
     Indication: Crohn^s disease
     Route: 048
     Dates: start: 20200312, end: 20210210
  4. MESALAMINE [Concomitant]
     Active Substance: MESALAMINE
     Indication: Crohn^s disease
     Route: 048
     Dates: start: 201806

REACTIONS (10)
  - Antiphospholipid syndrome [Recovered/Resolved with Sequelae]
  - Renal tubular acidosis [Not Recovered/Not Resolved]
  - Intestinal haemorrhage [Unknown]
  - Deep vein thrombosis [Unknown]
  - Cerebral infarction [Recovered/Resolved]
  - Guillain-Barre syndrome [Recovered/Resolved]
  - Lupus-like syndrome [Recovered/Resolved]
  - Crohn^s disease [Recovering/Resolving]
  - Pancreatitis [Unknown]
  - Enteritis infectious [Recovered/Resolved]

NARRATIVE: CASE EVENT DATE: 20210511
